FAERS Safety Report 8336214-8 (Version None)
Quarter: 2012Q2

REPORT INFORMATION
  Report Type: 
  Country: None (occurrence: None)
  Receive Date: 20120504
  Receipt Date: 20120425
  Transmission Date: 20120825
  Serious: Yes (Other)
  Sender: FDA-Public Use
  Company Number: US-BAYER-200811104NA

PATIENT
  Age: 50 Year
  Sex: Male

DRUGS (7)
  1. BETASERON [Suspect]
     Indication: RELAPSING-REMITTING MULTIPLE SCLEROSIS
     Dosage: 8 MIU, QOD
     Route: 058
     Dates: start: 20030714, end: 20080111
  2. SYNTHROID [Concomitant]
     Indication: HYPOTHYROIDISM
     Dosage: DOSAGE UNKNOWN
     Dates: end: 20081007
  3. BETASERON [Suspect]
     Dosage: 8 MIU, QOD
     Route: 058
  4. BETASERON [Suspect]
     Dosage: 8 MIU, QOD
     Route: 058
     Dates: end: 20120303
  5. BETASERON [Suspect]
     Dosage: 8 MIU, QOD
     Route: 058
  6. FLOMAX [Concomitant]
     Indication: PROSTATOMEGALY
  7. BETASERON [Suspect]
     Dosage: 8 MIU, QOD
     Route: 058

REACTIONS (29)
  - ASPARTATE AMINOTRANSFERASE INCREASED [None]
  - AMMONIA INCREASED [None]
  - CHILLS [None]
  - ARTHRALGIA [None]
  - HYPERTENSION [None]
  - AUTOIMMUNE HEPATITIS [None]
  - VITAMIN B12 INCREASED [None]
  - PAIN [None]
  - COLD SWEAT [None]
  - INJECTION SITE PAIN [None]
  - BLOOD CHOLESTEROL INCREASED [None]
  - ANTINUCLEAR ANTIBODY POSITIVE [None]
  - BENIGN PROSTATIC HYPERPLASIA [None]
  - ALANINE AMINOTRANSFERASE INCREASED [None]
  - INJECTION SITE INDURATION [None]
  - TREMOR [None]
  - WHITE BLOOD CELL COUNT DECREASED [None]
  - INJECTION SITE HAEMORRHAGE [None]
  - MYALGIA [None]
  - INJECTION SITE MASS [None]
  - OSTEOPOROSIS [None]
  - ANAEMIA [None]
  - PARAESTHESIA [None]
  - RED BLOOD CELL COUNT DECREASED [None]
  - HYPOTHYROIDISM [None]
  - WEIGHT DECREASED [None]
  - PYREXIA [None]
  - INFLUENZA LIKE ILLNESS [None]
  - INJECTION SITE ERYTHEMA [None]
